FAERS Safety Report 5378928-8 (Version None)
Quarter: 2007Q3

REPORT INFORMATION
  Report Type: 
  Country: None (occurrence: None)
  Receive Date: 20070705
  Receipt Date: 20070226
  Transmission Date: 20080115
  Serious: No
  Sender: FDA-Public Use
  Company Number: A0640970A

PATIENT
  Age: 72 Year
  Sex: Female

DRUGS (8)
  1. PARNATE [Suspect]
     Indication: DEPRESSION
     Dosage: 10MG FOUR TIMES PER DAY
     Route: 048
  2. VITAMIN [Suspect]
     Indication: MACULAR DEGENERATION
     Dosage: 1CAP TWICE PER DAY
     Dates: start: 20070220, end: 20070222
  3. SYNTHROID [Concomitant]
  4. VALIUM [Concomitant]
  5. ATIVAN [Concomitant]
  6. TIMOPTIC [Concomitant]
  7. XALATAN [Concomitant]
  8. CENTRUM [Concomitant]

REACTIONS (6)
  - ABDOMINAL PAIN UPPER [None]
  - CHROMATURIA [None]
  - DRUG INEFFECTIVE [None]
  - HEADACHE [None]
  - PALPITATIONS [None]
  - URINE ODOUR ABNORMAL [None]
